FAERS Safety Report 4980825-4 (Version None)
Quarter: 2006Q2

REPORT INFORMATION
  Report Type: 
  Country: None (occurrence: None)
  Receive Date: 20060424
  Receipt Date: 20051207
  Transmission Date: 20061013
  Serious: Yes (Hospitalization)
  Sender: FDA-Public Use
  Company Number: US-MERCK-0512USA01288

PATIENT
  Age: 66 Year
  Sex: Female
  Weight: 79 kg

DRUGS (14)
  1. VIOXX [Suspect]
     Indication: ARTHRITIS
     Route: 048
     Dates: start: 19990723, end: 20010922
  2. HYDROCODONE BITARTRATE + ACETAMINOPHEN [Concomitant]
     Route: 065
     Dates: start: 19990502, end: 20020312
  3. ALTACE [Concomitant]
     Route: 065
     Dates: start: 20010201, end: 20020530
  4. AVALIDE [Concomitant]
     Route: 065
     Dates: start: 20010307, end: 20020113
  5. DILTIAZEM MALATE [Concomitant]
     Route: 065
     Dates: start: 20010530, end: 20020604
  6. TRAZODONE HYDROCHLORIDE [Concomitant]
     Route: 065
     Dates: start: 20010424, end: 20020516
  7. AVAPRO [Concomitant]
     Route: 065
  8. DETROL [Concomitant]
     Route: 065
  9. FUROSEMIDE [Concomitant]
     Route: 065
  10. GLUCOPHAGE [Concomitant]
     Route: 065
  11. GLYBURIDE [Concomitant]
     Route: 065
  12. PRILOSEC [Concomitant]
     Route: 065
  13. PROMETHAZINE [Concomitant]
     Route: 065
  14. PROPULSID [Concomitant]
     Route: 065

REACTIONS (3)
  - MYOCARDIAL INFARCTION [None]
  - PNEUMONIA [None]
  - RENAL FAILURE [None]
